FAERS Safety Report 15578924 (Version 1)
Quarter: 2018Q4

REPORT INFORMATION
  Report Type: Spontaneous
  Country: US (occurrence: US)
  Receive Date: 20181029
  Receipt Date: 20181029
  Transmission Date: 20190205
  Serious: No
  Sender: FDA-Public Use
  Company Number: None

PATIENT
  Age: 67 Year
  Sex: Female

DRUGS (2)
  1. TALTZ [Suspect]
     Active Substance: IXEKIZUMAB
     Indication: PUSTULAR PSORIASIS
     Dosage: ?          OTHER FREQUENCY:EVERY 4 WEEKS AS D;?
     Route: 058
     Dates: start: 201802
  2. TALTZ [Suspect]
     Active Substance: IXEKIZUMAB
     Indication: POLYARTHRITIS

REACTIONS (4)
  - Fungal infection [None]
  - Fungal oesophagitis [None]
  - Candida infection [None]
  - Gastrooesophageal reflux disease [None]
